FAERS Safety Report 4297375-3 (Version None)
Quarter: 2004Q1

REPORT INFORMATION
  Report Type: 
  Country: None (occurrence: None)
  Receive Date: 20040213
  Receipt Date: 20040210
  Transmission Date: 20041129
  Serious: Yes (Death)
  Sender: FDA-Public Use
  Company Number: US-JNJFOC-20040100496

PATIENT
  Age: 79 Year
  Sex: Male

DRUGS (3)
  1. REMINYL [Suspect]
     Indication: DEMENTIA
     Dosage: 8 MG, 2 IN 1 DAY, ORAL
     Route: 048
     Dates: end: 20031101
  2. LIPITOR [Concomitant]
  3. VITAMIN E (TOCOPHEROL) CAPSULES [Concomitant]

REACTIONS (1)
  - DEATH [None]
